FAERS Safety Report 18427156 (Version 1)
Quarter: 2020Q4

REPORT INFORMATION
  Report Type: Spontaneous
  Country: RU (occurrence: RU)
  Receive Date: 20201026
  Receipt Date: 20201026
  Transmission Date: 20210114
  Serious: Yes (Other)
  Sender: FDA-Public Use
  Company Number: RU-BAYER-2020-225200

PATIENT
  Age: 62 Year
  Sex: Female

DRUGS (2)
  1. ANGELIQ [Suspect]
     Active Substance: DROSPIRENONE\ESTRADIOL
  2. ANGELIQ [Suspect]
     Active Substance: DROSPIRENONE\ESTRADIOL

REACTIONS (1)
  - Phaeochromocytoma [None]
